FAERS Safety Report 20127700 (Version 1)
Quarter: 2021Q4

REPORT INFORMATION
  Report Type: Spontaneous
  Country: CA (occurrence: CA)
  Receive Date: 20211129
  Receipt Date: 20211129
  Transmission Date: 20220304
  Serious: Yes (Other)
  Sender: FDA-Public Use
  Company Number: CA-SA-SAC20211124001343

PATIENT
  Sex: Female

DRUGS (6)
  1. LEFLUNOMIDE [Suspect]
     Active Substance: LEFLUNOMIDE
     Indication: Product used for unknown indication
     Dosage: UNK
  2. METHOTREXATE [Suspect]
     Active Substance: METHOTREXATE
     Indication: Product used for unknown indication
     Dosage: UNK
     Route: 048
  3. CELEBREX [Concomitant]
     Active Substance: CELECOXIB
     Dosage: UNK
  4. NAPROXEN [Concomitant]
     Active Substance: NAPROXEN
     Dosage: UNK
  5. OTEZLA [Concomitant]
     Active Substance: APREMILAST
     Dosage: UNK
  6. PREDNISONE [Concomitant]
     Active Substance: PREDNISONE
     Dosage: UNK UNK, QD

REACTIONS (10)
  - Amyotrophic lateral sclerosis [Unknown]
  - Discomfort [Unknown]
  - Dysstasia [Unknown]
  - Gait disturbance [Unknown]
  - Pain [Unknown]
  - Erythema nodosum [Unknown]
  - Joint swelling [Unknown]
  - Psoriasis [Unknown]
  - Arthritis [Unknown]
  - Arthralgia [Unknown]
